FAERS Safety Report 25888771 (Version 1)
Quarter: 2025Q4

REPORT INFORMATION
  Report Type: Spontaneous
  Country: TR (occurrence: TR)
  Receive Date: 20251007
  Receipt Date: 20251007
  Transmission Date: 20260117
  Serious: Yes (Hospitalization)
  Sender: Steriscience PTE
  Company Number: TR-STERISCIENCE B.V.-2025-ST-001544

PATIENT
  Age: 31 Year
  Sex: Male

DRUGS (1)
  1. ROCURONIUM BROMIDE [Suspect]
     Active Substance: ROCURONIUM BROMIDE
     Indication: Anaesthesia
     Dosage: 50 MILLIGRAM
     Route: 042

REACTIONS (2)
  - Bromoderma [None]
  - Post inflammatory pigmentation change [Unknown]
